FAERS Safety Report 9789445 (Version 2)
Quarter: 2014Q1

REPORT INFORMATION
  Report Type: Spontaneous
  Country: US (occurrence: US)
  Receive Date: 20131231
  Receipt Date: 20140319
  Transmission Date: 20141002
  Serious: Yes (Hospitalization, Other)
  Sender: FDA-Public Use
  Company Number: US-JNJFOC-20131211972

PATIENT
  Age: 41 Year
  Sex: Female
  Weight: 45.81 kg

DRUGS (4)
  1. EXTRA STRENGTH TYLENOL [Suspect]
     Route: 065
  2. EXTRA STRENGTH TYLENOL [Suspect]
     Indication: ABDOMINAL PAIN UPPER
     Route: 065
     Dates: start: 2011, end: 201112
  3. REGULAR STRENGTH TYLENOL [Suspect]
     Route: 065
  4. REGULAR STRENGTH TYLENOL [Suspect]
     Indication: PRODUCT USED FOR UNKNOWN INDICATION
     Route: 065
     Dates: start: 2011, end: 201112

REACTIONS (4)
  - Renal failure acute [Unknown]
  - Acute hepatic failure [Unknown]
  - Toxicity to various agents [Unknown]
  - Overdose [Unknown]
